FAERS Safety Report 8204777-9 (Version None)
Quarter: 2012Q1

REPORT INFORMATION
  Report Type: 
  Country: None (occurrence: None)
  Receive Date: 20120313
  Receipt Date: 20120303
  Transmission Date: 20120608
  Serious: Yes (Other)
  Sender: FDA-Public Use
  Company Number: CA-JNJFOC-20120302303

PATIENT
  Sex: Female

DRUGS (3)
  1. REMICADE [Suspect]
     Indication: CROHN'S DISEASE
     Route: 042
     Dates: start: 20120229, end: 20120229
  2. REMICADE [Suspect]
     Dosage: DOSE: 400MG PER 0,2,4,6 WEEKS
     Route: 042
     Dates: start: 20120215
  3. REMICADE [Suspect]
     Route: 042
     Dates: start: 20060101

REACTIONS (1)
  - ADVERSE DRUG REACTION [None]
